FAERS Safety Report 6701676-6 (Version None)
Quarter: 2010Q2

REPORT INFORMATION
  Report Type: 
  Country: None (occurrence: None)
  Receive Date: 20100429
  Receipt Date: 20100415
  Transmission Date: 20101027
  Serious: Yes (Other)
  Sender: FDA-Public Use
  Company Number: PHHY2010BE26965

PATIENT
  Age: 81 Year
  Sex: Female

DRUGS (2)
  1. EXELON [Suspect]
     Dosage: UNK
     Dates: start: 20091101
  2. CLASSICAL DRUGS [Concomitant]

REACTIONS (1)
  - ANGIOEDEMA [None]
